FAERS Safety Report 15373824 (Version 2)
Quarter: 2018Q3

REPORT INFORMATION
  Report Type: Report from Study
  Country: US (occurrence: US)
  Receive Date: 20180912
  Receipt Date: 20180924
  Transmission Date: 20181010
  Serious: Yes (Hospitalization, Other)
  Sender: FDA-Public Use
  Company Number: US-GILEAD-2018-0362412

PATIENT
  Age: 45 Year
  Sex: Male
  Weight: 63.9 kg

DRUGS (7)
  1. LASIX [Concomitant]
     Active Substance: FUROSEMIDE
  2. TYLENOL [Concomitant]
     Active Substance: ACETAMINOPHEN
  3. AMBRISENTAN [Suspect]
     Active Substance: AMBRISENTAN
     Indication: PULMONARY ARTERIAL HYPERTENSION
     Dosage: 10 MG, QD
     Route: 065
     Dates: start: 20180302
  4. ELIQUIS [Concomitant]
     Active Substance: APIXABAN
  5. NORVASC [Concomitant]
     Active Substance: AMLODIPINE BESYLATE
  6. COREG [Concomitant]
     Active Substance: CARVEDILOL
  7. CLARITYN                           /00082102/ [Concomitant]

REACTIONS (1)
  - Pancreatitis [Recovered/Resolved]

NARRATIVE: CASE EVENT DATE: 20180802
